FAERS Safety Report 10200959 (Version 1)
Quarter: 2014Q2

REPORT INFORMATION
  Report Type: Spontaneous
  Country: US (occurrence: US)
  Receive Date: 20140528
  Receipt Date: 20140528
  Transmission Date: 20141212
  Serious: Yes (Other)
  Sender: FDA-Public Use
  Company Number: PHHY2014US063771

PATIENT
  Age: 49 Year
  Sex: Male

DRUGS (3)
  1. MYCOPHENOLIC ACID [Suspect]
     Indication: IMMUNOSUPPRESSION
  2. TACROLIMUS [Suspect]
     Indication: IMMUNOSUPPRESSION
  3. PREDNISONE [Suspect]
     Indication: IMMUNOSUPPRESSION

REACTIONS (13)
  - Biliary tract disorder [Recovered/Resolved]
  - Vasculitis [Recovered/Resolved]
  - Hepatic fibrosis [Recovered/Resolved]
  - Muscle atrophy [Recovered/Resolved]
  - Ascites [Recovered/Resolved]
  - Jaundice [Recovered/Resolved]
  - Fatigue [Recovered/Resolved]
  - Abdominal discomfort [Recovered/Resolved]
  - Hepatitis C [Recovered/Resolved]
  - Liver transplant rejection [Recovered/Resolved]
  - Chronic hepatitis [Recovered/Resolved]
  - Hepatitis cholestatic [Recovered/Resolved]
  - Lymphocytic infiltration [Recovered/Resolved]
